FAERS Safety Report 13390414 (Version 3)
Quarter: 2017Q2

REPORT INFORMATION
  Report Type: Spontaneous
  Country: US (occurrence: US)
  Receive Date: 20170331
  Receipt Date: 20170426
  Transmission Date: 20170830
  Serious: Yes (Other)
  Sender: FDA-Public Use
  Company Number: US-PFIZER INC-2017135502

PATIENT
  Age: 56 Year
  Sex: Male
  Weight: 73 kg

DRUGS (2)
  1. SUTENT [Suspect]
     Active Substance: SUNITINIB MALATE
     Indication: RENAL CANCER METASTATIC
     Dosage: 37.5 MG, CYCLIC (DAILY FOR 4 WEEKS ON AND 2 WEEKS OFF, D 1-28 Q 42 DAYS)
     Route: 048
     Dates: start: 20170324, end: 201704
  2. SUTENT [Suspect]
     Active Substance: SUNITINIB MALATE
     Indication: RENAL CANCER

REACTIONS (3)
  - Diarrhoea [Recovered/Resolved]
  - Fatigue [Unknown]
  - Ascites [Unknown]

NARRATIVE: CASE EVENT DATE: 20170325
